FAERS Safety Report 6283159-3 (Version None)
Quarter: 2009Q3

REPORT INFORMATION
  Report Type: 
  Country: None (occurrence: None)
  Receive Date: 20090724
  Receipt Date: 20090717
  Transmission Date: 20100115
  Serious: Yes (Hospitalization)
  Sender: FDA-Public Use
  Company Number: B0578937A

PATIENT
  Sex: Female

DRUGS (5)
  1. LANOXIN [Suspect]
     Indication: CARDIAC VALVE DISEASE
     Dosage: .125MG PER DAY
     Route: 048
     Dates: start: 20020101, end: 20090502
  2. EUTIROX [Concomitant]
     Indication: HYPOTHYROIDISM
     Dosage: 75MCG PER DAY
     Route: 048
     Dates: start: 20020101
  3. LASIX [Concomitant]
     Dosage: 25MG PER DAY
     Route: 048
     Dates: start: 20020101
  4. CORTONE [Concomitant]
     Indication: HYPOPITUITARISM
     Route: 048
     Dates: start: 20020101
  5. ALDACTONE [Concomitant]
     Dosage: 50MG PER DAY
     Route: 048
     Dates: start: 20020101

REACTIONS (5)
  - ASTHENIA [None]
  - BLOOD CREATININE INCREASED [None]
  - CARDIOACTIVE DRUG LEVEL INCREASED [None]
  - NAUSEA [None]
  - VOMITING [None]
